FAERS Safety Report 7105775-9 (Version None)
Quarter: 2010Q4

REPORT INFORMATION
  Report Type: 
  Country: None (occurrence: None)
  Receive Date: 20101110
  Receipt Date: 20101101
  Transmission Date: 20110411
  Serious: Yes (Death, Other)
  Sender: FDA-Public Use
  Company Number: THQ2010A03413

PATIENT
  Age: 79 Year
  Sex: Male

DRUGS (34)
  1. LANSOPRAZOLE [Suspect]
     Indication: PRODUCT USED FOR UNKNOWN INDICATION
     Dates: start: 20100911, end: 20100101
  2. PIRFENIDONE [Suspect]
     Indication: ACUTE INTERSTITIAL PNEUMONITIS
     Dosage: 600 MG (200 MG, 3 IN 1 D), 1200 MG (400 MG, 3 IN 1 D), 1600 MG, 1800 MG (600 MG, 3 IN 1 D)
     Dates: start: 20100913, end: 20100921
  3. PIRFENIDONE [Suspect]
     Indication: ACUTE INTERSTITIAL PNEUMONITIS
     Dosage: 600 MG (200 MG, 3 IN 1 D), 1200 MG (400 MG, 3 IN 1 D), 1600 MG, 1800 MG (600 MG, 3 IN 1 D)
     Dates: start: 20100922, end: 20100923
  4. PIRFENIDONE [Suspect]
     Indication: ACUTE INTERSTITIAL PNEUMONITIS
     Dosage: 600 MG (200 MG, 3 IN 1 D), 1200 MG (400 MG, 3 IN 1 D), 1600 MG, 1800 MG (600 MG, 3 IN 1 D)
     Dates: start: 20100924, end: 20100924
  5. PIRFENIDONE [Suspect]
     Indication: ACUTE INTERSTITIAL PNEUMONITIS
     Dosage: 600 MG (200 MG, 3 IN 1 D), 1200 MG (400 MG, 3 IN 1 D), 1600 MG, 1800 MG (600 MG, 3 IN 1 D)
     Dates: start: 20100925, end: 20100925
  6. HICALIQ RF (GLUCOSE, POTASSIUM ACETATE, CALCIUM GLUCONATE, MAGNESIUM S [Concomitant]
  7. FENTANYL [Concomitant]
  8. MIDAZOLAM HCL [Concomitant]
  9. HUMULIN R [Concomitant]
  10. SODIUM LACTATE, POTASSIUM CHLORIDE, SODIUM CHLORIDE, CALCIUM CHLORIDE [Concomitant]
  11. NOR-ADRENALIN (NOREPINEPHRINE) [Concomitant]
  12. DOBUTREX [Concomitant]
  13. FULCALIQ 1 (AMINO ACIDS/CARBOHYDRATES/MINERALS/VITAMINS,) [Concomitant]
  14. HEPARIN SODIUM [Concomitant]
  15. ALBUMIN (HUMAN) [Concomitant]
  16. PANTOL (PANTHENOL) [Concomitant]
  17. PERDIPINEDIPINE HYDROCHLORIDE) [Concomitant]
  18. LAXOBERON (SODIUM PICOSULFATE) [Concomitant]
  19. PREDNISOLONE [Concomitant]
  20. AMLODIPINE BESYLATE [Concomitant]
  21. ACETAMINOPHEN [Concomitant]
  22. LASIX [Concomitant]
  23. HEPARIN AND PREPARATIONS (HEPARIN) [Concomitant]
  24. SODIUM LACTATE, POTASSIUM CHLORIDE, SODIUM CHLORIDE, CARBOHYDRATES NOS [Concomitant]
  25. ALBUMINATE (PLASMA PROTEIN FRACTION (HUMAN)) [Concomitant]
  26. HANP (CARPERITIDE) [Concomitant]
  27. ONOACT (LANDIOLOL HYDROCHLORIDE) [Concomitant]
  28. ELASPOL (SIVELESTAT) [Concomitant]
  29. MEROPEN (MEROPENEM TRIHYDRATE) [Concomitant]
  30. PAZUCROSS (PAZUFLOXACIN) [Concomitant]
  31. SOLU-MEDROL [Concomitant]
  32. FUNGUARD (MICAFUNGIN SODIUM) [Concomitant]
  33. ZYVOX [Concomitant]
  34. DIPRIVAN [Concomitant]

REACTIONS (11)
  - ACUTE MYOCARDIAL INFARCTION [None]
  - ALANINE AMINOTRANSFERASE INCREASED [None]
  - ASPARTATE AMINOTRANSFERASE INCREASED [None]
  - BLOOD CREATININE INCREASED [None]
  - BLOOD LACTATE DEHYDROGENASE INCREASED [None]
  - FIBRIN D DIMER INCREASED [None]
  - GAMMA-GLUTAMYLTRANSFERASE INCREASED [None]
  - MALNUTRITION [None]
  - MULTI-ORGAN FAILURE [None]
  - PROTHROMBIN TIME PROLONGED [None]
  - WHITE BLOOD CELL COUNT INCREASED [None]
